FAERS Safety Report 5643933-0 (Version None)
Quarter: 2008Q1

REPORT INFORMATION
  Report Type: 
  Country: None (occurrence: None)
  Receive Date: 20080226
  Receipt Date: 20080211
  Transmission Date: 20080703
  Serious: Yes (Hospitalization)
  Sender: FDA-Public Use
  Company Number: 2008003665

PATIENT
  Age: 75 Year
  Sex: Male
  Weight: 90.7194 kg

DRUGS (6)
  1. ADVANCED LISTERINE WITH TARTAR PROTECTION (MENTHOL, METHYL SALICYLATE, [Suspect]
     Indication: DENTAL DISORDER PROPHYLAXIS
     Dosage: 20 ML, 2 TIMES A DAY, ORAL
     Route: 048
     Dates: start: 20080119, end: 20080206
  2. ATENOLOL [Concomitant]
  3. ASPIRIN [Concomitant]
  4. ALTACE [Concomitant]
  5. PROTONIX [Concomitant]
  6. VYTORIN [Concomitant]

REACTIONS (4)
  - ACCIDENTAL EXPOSURE [None]
  - BURNING SENSATION [None]
  - CHEST PAIN [None]
  - DYSPNOEA [None]
